FAERS Safety Report 6265447-X (Version None)
Quarter: 2009Q3

REPORT INFORMATION
  Report Type: 
  Country: None (occurrence: None)
  Receive Date: 20090713
  Receipt Date: 20090701
  Transmission Date: 20100115
  Serious: Yes (Hospitalization)
  Sender: FDA-Public Use
  Company Number: IT-PFIZER INC-2007027978

PATIENT
  Age: 69 Year

DRUGS (6)
  1. SUNITINIB MALATE [Suspect]
     Indication: BREAST CANCER
     Dosage: 37.5 MG, 1X/DAY
     Route: 048
     Dates: start: 20070129
  2. EUTIROX [Concomitant]
     Dosage: 12.5 UG, 1X/DAY
     Dates: start: 20070323, end: 20070401
  3. EUTIROX [Concomitant]
     Dosage: 25 UG, 1X/DAY
     Route: 048
     Dates: start: 20070402
  4. NEURONTIN [Concomitant]
     Dosage: DAILY
     Route: 048
     Dates: start: 20070319
  5. TACHIDOL [Concomitant]
     Dosage: 500 MGX2,DAILY
     Route: 048
     Dates: start: 20070319
  6. MYCOSTATIN [Concomitant]
     Route: 048
     Dates: start: 20070226, end: 20070402

REACTIONS (4)
  - ANAEMIA [None]
  - ASTHENIA [None]
  - FAECES DISCOLOURED [None]
  - THROMBOCYTOPENIA [None]
